FAERS Safety Report 20144522 (Version 2)
Quarter: 2023Q1

REPORT INFORMATION
  Report Type: Spontaneous
  Country: TH (occurrence: TH)
  Receive Date: 20211203
  Receipt Date: 20230113
  Transmission Date: 20230418
  Serious: Yes (Life-Threatening, Hospitalization, Other)
  Sender: FDA-Public Use
  Company Number: None

PATIENT
  Age: 62 Year
  Sex: Female
  Weight: 60 kg

DRUGS (13)
  1. METFORMIN [Interacting]
     Active Substance: METFORMIN HYDROCHLORIDE
     Indication: Type 2 diabetes mellitus
     Dosage: 2000 MILLIGRAM, QD
     Route: 065
     Dates: start: 20181012
  2. LOSARTAN [Interacting]
     Active Substance: LOSARTAN
     Indication: Essential hypertension
     Dosage: 100 MILLIGRAM, PER DAY
     Route: 065
     Dates: start: 201905
  3. AMLODIPINE [Interacting]
     Active Substance: AMLODIPINE BESYLATE
     Indication: Essential hypertension
     Dosage: 10 MILLIGRAM, PER DAY
     Route: 065
     Dates: start: 201905
  4. RIBOCICLIB [Interacting]
     Active Substance: RIBOCICLIB
     Indication: Hormone receptor positive HER2 negative breast cancer
     Dosage: 600 MILLIGRAM PER DAY (3 WEEKS ON/ 1 WEEK OFF)
     Route: 065
     Dates: start: 20190912, end: 20191112
  5. RIBOCICLIB [Interacting]
     Active Substance: RIBOCICLIB
     Indication: Breast cancer recurrent
     Dosage: UNK
     Route: 065
  6. RIBOCICLIB [Interacting]
     Active Substance: RIBOCICLIB
     Indication: Breast cancer metastatic
  7. SIMVASTATIN [Interacting]
     Active Substance: SIMVASTATIN
     Indication: Dyslipidaemia
     Dosage: 10 MILLIGRAM, PER DAY
     Route: 065
     Dates: start: 201905
  8. FULVESTRANT [Suspect]
     Active Substance: FULVESTRANT
     Indication: Hormone receptor positive HER2 negative breast cancer
     Dosage: 500 MILLIGRAM, EVERY 4 WEEKS
     Route: 030
     Dates: start: 20190912, end: 20191112
  9. FULVESTRANT [Suspect]
     Active Substance: FULVESTRANT
     Indication: Breast cancer recurrent
     Dosage: UNK
     Route: 065
     Dates: start: 201905
  10. FULVESTRANT [Suspect]
     Active Substance: FULVESTRANT
     Indication: Breast cancer metastatic
     Dosage: UNK (MONOTHERAPY) STOP DATE: DEC 2020
     Route: 065
  11. GLIPIZIDE [Concomitant]
     Active Substance: GLIPIZIDE
     Indication: Type 2 diabetes mellitus
     Dosage: 5 MILLIGRAM, PER DAY
     Route: 065
     Dates: start: 201905
  12. PALBOCICLIB [Concomitant]
     Active Substance: PALBOCICLIB
     Indication: Hormone receptor positive HER2 negative breast cancer
     Dosage: 125 MILLIGRAM, PER DAY (3 WEEKS ON/1WEEK OFF )
     Route: 065
     Dates: start: 201906, end: 201909
  13. PALBOCICLIB [Concomitant]
     Active Substance: PALBOCICLIB
     Indication: Breast cancer recurrent
     Dosage: UNK
     Route: 065
     Dates: start: 201905

REACTIONS (12)
  - Acute respiratory failure [Recovered/Resolved]
  - Electrocardiogram QT prolonged [Recovered/Resolved]
  - Leukocytosis [Recovered/Resolved]
  - Drug level increased [Recovered/Resolved]
  - Arrhythmia [Recovered/Resolved]
  - Gastrointestinal toxicity [Unknown]
  - Acute kidney injury [Recovered/Resolved]
  - Blood creatinine increased [Recovered/Resolved]
  - Drug interaction [Unknown]
  - Lactic acidosis [Recovered/Resolved]
  - Renal impairment [Recovered/Resolved]
  - Toxicity to various agents [Unknown]

NARRATIVE: CASE EVENT DATE: 20190101
